FAERS Safety Report 16469703 (Version 1)
Quarter: 2019Q2

REPORT INFORMATION
  Report Type: Spontaneous
  Country: US (occurrence: US)
  Receive Date: 20190514
  Receipt Date: 20190514
  Transmission Date: 20190711
  Serious: Yes (Death)
  Sender: FDA-Public Use
  Company Number: None

PATIENT
  Age: 57 Year
  Sex: Male

DRUGS (1)
  1. TEMOZOLOMIDE 5MG CAP (HUB DRUG) [Suspect]
     Active Substance: TEMOZOLOMIDE
     Indication: BRAIN NEOPLASM MALIGNANT
     Dosage: 5MG 1 X 189MG CAPSULE AL ORAL
     Route: 048
     Dates: start: 20190104, end: 20190505

REACTIONS (1)
  - Death [None]

NARRATIVE: CASE EVENT DATE: 20190505
